FAERS Safety Report 15692749 (Version 2)
Quarter: 2019Q1

REPORT INFORMATION
  Report Type: Report from Study
  Country: US (occurrence: US)
  Receive Date: 20181206
  Receipt Date: 20190110
  Transmission Date: 20190417
  Serious: Yes (Other)
  Sender: FDA-Public Use
  Company Number: US-ALEXION PHARMACEUTICALS INC.-A201815762

PATIENT
  Sex: Male
  Weight: 76.19 kg

DRUGS (2)
  1. SOLIRIS [Suspect]
     Active Substance: ECULIZUMAB
     Indication: PAROXYSMAL NOCTURNAL HAEMOGLOBINURIA
     Dosage: 600 MG, UNK
     Route: 065
     Dates: start: 20180105
  2. SOLIRIS [Suspect]
     Active Substance: ECULIZUMAB
     Dosage: 900 MG, UNK
     Route: 065

REACTIONS (16)
  - Stag horn calculus [Unknown]
  - Nephrolithiasis [Not Recovered/Not Resolved]
  - Urethral stenosis [Not Recovered/Not Resolved]
  - Splenic calcification [Unknown]
  - Pyelonephritis [Unknown]
  - Constipation [Unknown]
  - Nausea [Unknown]
  - Hydronephrosis [Unknown]
  - Urinary tract inflammation [Unknown]
  - Haemangioma of liver [Unknown]
  - Malaise [Unknown]
  - Asthenia [Unknown]
  - Renal colic [Unknown]
  - Chills [Unknown]
  - Abdominal pain [Unknown]
  - Haematuria [Unknown]

NARRATIVE: CASE EVENT DATE: 2018
